FAERS Safety Report 9503152 (Version 2)
Quarter: 2013Q3

REPORT INFORMATION
  Report Type: Spontaneous
  Country: US (occurrence: US)
  Receive Date: 20130906
  Receipt Date: 20130927
  Transmission Date: 20140515
  Serious: No
  Sender: FDA-Public Use
  Company Number: US-PFIZER INC-2013254689

PATIENT
  Age: 67 Year
  Sex: Female
  Weight: 102.41 kg

DRUGS (1)
  1. XELJANZ [Suspect]
     Indication: RHEUMATOID ARTHRITIS
     Dosage: 5 MG, 2X/DAY
     Route: 048
     Dates: start: 20130522, end: 20130714

REACTIONS (2)
  - Hepatic enzyme increased [Recovering/Resolving]
  - Hepatic steatosis [Unknown]
